FAERS Safety Report 11351211 (Version 1)
Quarter: 2015Q3

REPORT INFORMATION
  Report Type: Spontaneous
  Country: GB (occurrence: GB)
  Receive Date: 20150807
  Receipt Date: 20150807
  Transmission Date: 20151125
  Serious: Yes (Disabling, Other)
  Sender: FDA-Public Use
  Company Number: GB-ABBVIE-15P-167-1440462-00

PATIENT
  Age: 83 Year
  Sex: Female

DRUGS (4)
  1. VALPROATE SODIUM. [Suspect]
     Active Substance: VALPROATE SODIUM
     Indication: AFFECTIVE DISORDER
     Route: 065
  2. PROCYCLIDINE [Suspect]
     Active Substance: PROCYCLIDINE
     Indication: PRODUCT USED FOR UNKNOWN INDICATION
     Route: 065
  3. FLUPENTIXOL DECANOATE [Concomitant]
     Active Substance: FLUPENTIXOL DECANOATE
     Indication: PRODUCT USED FOR UNKNOWN INDICATION
     Dosage: 20MG/1ML EVERY 3 WEEKS
  4. DIAZEPAM. [Interacting]
     Active Substance: DIAZEPAM
     Indication: PRODUCT USED FOR UNKNOWN INDICATION
     Route: 065

REACTIONS (50)
  - Incoherent [Unknown]
  - Nausea [Unknown]
  - Agitation [Unknown]
  - Confusional state [Unknown]
  - Hostility [Unknown]
  - Hypokinesia [Unknown]
  - Thirst [Unknown]
  - Reading disorder [Unknown]
  - Dizziness [Unknown]
  - Memory impairment [Unknown]
  - Stupor [Unknown]
  - Nervousness [Unknown]
  - Speech disorder [Unknown]
  - Impulsive behaviour [Unknown]
  - Dysgraphia [Unknown]
  - Disorientation [Unknown]
  - Drug interaction [Unknown]
  - Asthenia [Unknown]
  - Hallucination [Unknown]
  - Mental disorder [Unknown]
  - Mood altered [Unknown]
  - Thinking abnormal [Unknown]
  - Depressed mood [Unknown]
  - Panic attack [Unknown]
  - Screaming [Unknown]
  - Insomnia [Unknown]
  - Dyskinesia [Unknown]
  - Stress [Unknown]
  - Irritability [Unknown]
  - Abnormal behaviour [Unknown]
  - Heart rate increased [Recovering/Resolving]
  - Trismus [Unknown]
  - Disturbance in attention [Unknown]
  - Somnolence [Unknown]
  - Learning disorder [Unknown]
  - Neurosis [Unknown]
  - Psychotic behaviour [Unknown]
  - Mydriasis [Unknown]
  - Salivary hypersecretion [Unknown]
  - Unresponsive to stimuli [Unknown]
  - Sleep disorder [Unknown]
  - Coordination abnormal [Unknown]
  - Sleep terror [Unknown]
  - Lethargy [Unknown]
  - Anxiety [Unknown]
  - Aggression [Unknown]
  - Restlessness [Unknown]
  - Jaw disorder [Unknown]
  - Musculoskeletal stiffness [Unknown]
  - Swelling face [Unknown]

NARRATIVE: CASE EVENT DATE: 20150615
